FAERS Safety Report 16403541 (Version 3)
Quarter: 2019Q3

REPORT INFORMATION
  Report Type: Spontaneous
  Country: PL (occurrence: PL)
  Receive Date: 20190607
  Receipt Date: 20190712
  Transmission Date: 20191004
  Serious: Yes (Life-Threatening, Other)
  Sender: FDA-Public Use
  Company Number: PL-AUROBINDO-AUR-APL-2019-015506

PATIENT

DRUGS (15)
  1. ATORVASTATIN [Suspect]
     Active Substance: ATORVASTATIN
     Indication: CORONARY ARTERY DISEASE
  2. VALSARTAN. [Suspect]
     Active Substance: VALSARTAN
     Indication: CARDIOVASCULAR EVENT PROPHYLAXIS
     Dosage: 80 MG, 1X/DAY (IN THE MORNING)
     Route: 065
  3. VALSARTAN. [Suspect]
     Active Substance: VALSARTAN
     Indication: CORONARY ARTERY DISEASE
  4. GLICLAZIDE [Suspect]
     Active Substance: GLICLAZIDE
     Indication: CORONARY ARTERY DISEASE
  5. TICAGRELOR. [Suspect]
     Active Substance: TICAGRELOR
     Indication: CARDIOVASCULAR EVENT PROPHYLAXIS
     Dosage: 90 MILLIGRAM, TWO TIMES A DAY, BID
     Route: 048
  6. THEOPHYLLINE [Suspect]
     Active Substance: THEOPHYLLINE ANHYDROUS
     Indication: CORONARY ARTERY DISEASE
     Dosage: 300 MILLIGRAM, TWO TIMES A DAY, BID
     Route: 065
  7. ACETYLSALICYLIC ACID [Suspect]
     Active Substance: ASPIRIN
     Indication: CORONARY ARTERY DISEASE
  8. BISOPROLOL [Suspect]
     Active Substance: BISOPROLOL
     Indication: CORONARY ARTERY DISEASE
     Dosage: 7.5 MILLIGRAM, ONCE A DAY, 7.5 MILLIGRAM PER DAY (1 X 7.5 MG / DAY)
     Route: 065
  9. TICAGRELOR. [Suspect]
     Active Substance: TICAGRELOR
     Indication: CORONARY ARTERY DISEASE
  10. GLICLAZIDE [Suspect]
     Active Substance: GLICLAZIDE
     Indication: CARDIOVASCULAR EVENT PROPHYLAXIS
     Dosage: 60 MG, 1X/DAY (EXTENDED-RELEASE)
     Route: 048
  11. ATORVASTATIN [Suspect]
     Active Substance: ATORVASTATIN
     Indication: CARDIOVASCULAR EVENT PROPHYLAXIS
     Dosage: 40 MG, 1X/DAY(IN THE EVENING)
     Route: 065
  12. INSULIN [Suspect]
     Active Substance: INSULIN NOS
     Indication: BLOOD GLUCOSE ABNORMAL
     Dosage: UNK
     Route: 065
  13. BISOPROLOL [Suspect]
     Active Substance: BISOPROLOL
     Indication: CARDIOVASCULAR EVENT PROPHYLAXIS
     Dosage: 2.5 MG, 1X/DAY (IN THE MORNING)
     Route: 065
  14. THEOPHYLLINE [Suspect]
     Active Substance: THEOPHYLLINE ANHYDROUS
     Indication: CARDIOVASCULAR EVENT PROPHYLAXIS
  15. ACETYLSALICYLIC ACID [Suspect]
     Active Substance: ASPIRIN
     Indication: CARDIOVASCULAR EVENT PROPHYLAXIS
     Dosage: 75 MILLIGRAM, ONCE A DAY, QD
     Route: 065

REACTIONS (9)
  - Chest pain [Unknown]
  - Blood glucose increased [Unknown]
  - Diabetes mellitus inadequate control [Recovered/Resolved]
  - Blood pressure inadequately controlled [Recovered/Resolved]
  - Blood pressure increased [Recovered/Resolved]
  - Lipids abnormal [Recovered/Resolved]
  - Intentional dose omission [Unknown]
  - Lipid metabolism disorder [Recovered/Resolved]
  - Treatment noncompliance [Unknown]

NARRATIVE: CASE EVENT DATE: 201801
